FAERS Safety Report 6385161-X (Version None)
Quarter: 2009Q4

REPORT INFORMATION
  Report Type: 
  Country: None (occurrence: None)
  Receive Date: 20091002
  Receipt Date: 20090922
  Transmission Date: 20100525
  Serious: Yes (Death, Life-Threatening, Hospitalization, Other)
  Sender: FDA-Public Use
  Company Number: CH-JNJFOC-20090907648

PATIENT
  Age: 75 Year
  Sex: Male

DRUGS (15)
  1. TRAMADOL HYDROCHLORIDE [Suspect]
     Indication: DRUG USE FOR UNKNOWN INDICATION
     Route: 048
  2. SEROQUEL [Interacting]
     Indication: DRUG USE FOR UNKNOWN INDICATION
     Route: 048
  3. LYRICA [Interacting]
     Indication: POLYNEUROPATHY
     Route: 048
  4. NOVASOURCE GI CONTROL [Concomitant]
  5. CLEXANE [Concomitant]
  6. ACETAMINOPHEN [Concomitant]
  7. ASPEGIC 1000 [Concomitant]
  8. ATORVASTATIN [Concomitant]
  9. LAXOBERON [Concomitant]
  10. PROSCAR [Concomitant]
  11. XATRAL [Concomitant]
  12. NEXIUM [Concomitant]
  13. SERETIDE [Concomitant]
  14. SPIRIVA [Concomitant]
  15. DOSPIR [Concomitant]

REACTIONS (4)
  - ACUTE RESPIRATORY FAILURE [None]
  - ASPIRATION BRONCHIAL [None]
  - DEPRESSED LEVEL OF CONSCIOUSNESS [None]
  - DRUG INTERACTION [None]
